FAERS Safety Report 7548938-0 (Version None)
Quarter: 2011Q2

REPORT INFORMATION
  Report Type: 
  Country: None (occurrence: None)
  Receive Date: 20110615
  Receipt Date: 20110606
  Transmission Date: 20111010
  Serious: Yes (Other)
  Sender: FDA-Public Use
  Company Number: DE-ROCHE-728046

PATIENT
  Sex: Female

DRUGS (1)
  1. BONIVA [Suspect]
     Route: 042
     Dates: start: 20060101

REACTIONS (8)
  - MYALGIA [None]
  - ARTHRALGIA [None]
  - MUSCULOSKELETAL PAIN [None]
  - GAIT DISTURBANCE [None]
  - POLYNEUROPATHY [None]
  - IMMUNODEFICIENCY [None]
  - ASTHENIA [None]
  - CYSTITIS NONINFECTIVE [None]
